FAERS Safety Report 7467877-7 (Version None)
Quarter: 2011Q2

REPORT INFORMATION
  Report Type: 
  Country: None (occurrence: None)
  Receive Date: 20110509
  Receipt Date: 20110124
  Transmission Date: 20111010
  Serious: No
  Sender: FDA-Public Use
  Company Number: US-ALEXION-A201100102

PATIENT
  Sex: Female

DRUGS (3)
  1. BENADRYL [Suspect]
     Route: 042
  2. ANTIHISTAMINES [Suspect]
     Route: 048
  3. SOLIRIS [Suspect]
     Indication: PAROXYSMAL NOCTURNAL HAEMOGLOBINURIA
     Dosage: UNK
     Route: 042

REACTIONS (6)
  - LOCAL SWELLING [None]
  - RESTLESS LEGS SYNDROME [None]
  - FLUSHING [None]
  - HEADACHE [None]
  - MUSCULOSKELETAL STIFFNESS [None]
  - HAEMOGLOBINURIA [None]
